FAERS Safety Report 19211683 (Version 1)
Quarter: 2021Q2

REPORT INFORMATION
  Report Type: Spontaneous
  Country: GB (occurrence: GB)
  Receive Date: 20210504
  Receipt Date: 20210504
  Transmission Date: 20210717
  Serious: Yes (Hospitalization, Other)
  Sender: FDA-Public Use
  Company Number: GB-TEVA-2021-GB-1906475

PATIENT
  Age: 41 Year
  Sex: Female
  Weight: 84 kg

DRUGS (7)
  1. OCTAGAM IMMUNE GLOBULIN (HUMAN) [Concomitant]
     Active Substance: HUMAN IMMUNOGLOBULIN G
     Dosage: RECEIVED TWO DOSES OF IVIG (OCTAGAM) 0N 8/4/21 AND 9/4/21
  2. PROPRANOLOL [Concomitant]
     Active Substance: PROPRANOLOL HYDROCHLORIDE
  3. ELTROMBOPAG [Concomitant]
     Active Substance: ELTROMBOPAG
  4. DESOGESTREL [Concomitant]
     Active Substance: DESOGESTREL
     Indication: CONTRACEPTION
  5. PREDNISOLONE. [Suspect]
     Active Substance: PREDNISOLONE
     Dosage: COMMENCED ON 60MG PREDNISOLONE
     Route: 065
  6. LISINOPRIL. [Concomitant]
     Active Substance: LISINOPRIL
     Indication: HYPERTENSION
  7. SERTRALINE [Concomitant]
     Active Substance: SERTRALINE HYDROCHLORIDE
     Indication: DEPRESSION

REACTIONS (7)
  - Ischaemic stroke [Recovered/Resolved]
  - Superior sagittal sinus thrombosis [Recovered/Resolved]
  - Contusion [Recovered/Resolved]
  - Headache [Recovered/Resolved]
  - Thrombocytopenia [Unknown]
  - Anaphylactoid reaction [Recovered/Resolved]
  - Tri-iodothyronine decreased [Recovered/Resolved]

NARRATIVE: CASE EVENT DATE: 20210327
